FAERS Safety Report 5338801-8 (Version None)
Quarter: 2007Q2

REPORT INFORMATION
  Report Type: 
  Country: None (occurrence: None)
  Receive Date: 20070530
  Receipt Date: 20070521
  Transmission Date: 20071010
  Serious: Yes (Other)
  Sender: FDA-Public Use
  Company Number: PHBS2007DE08462

PATIENT
  Age: 17 Year
  Sex: Male

DRUGS (3)
  1. EVEROLIMUS [Suspect]
     Indication: RENAL TRANSPLANT
     Dosage: 1.7 MG/M2
     Route: 065
  2. MYFORTIC [Suspect]
     Indication: RENAL TRANSPLANT
     Route: 065
  3. PREDNISOLONE [Suspect]
     Indication: RENAL TRANSPLANT
     Route: 065

REACTIONS (4)
  - DEHYDRATION [None]
  - GASTROENTERITIS [None]
  - PYREXIA [None]
  - RENAL FAILURE ACUTE [None]
